FAERS Safety Report 5119172-9 (Version None)
Quarter: 2006Q3

REPORT INFORMATION
  Report Type: 
  Country: None (occurrence: None)
  Receive Date: 20060929
  Receipt Date: 20060929
  Transmission Date: 20061208
  Serious: Yes (Other)
  Sender: FDA-Public Use
  Company Number: None

PATIENT
  Sex: Female
  Weight: 52.4 kg

DRUGS (7)
  1. DOCETAXEL      36 MG/M2     AVENTIS PHARMACUETICALS [Suspect]
     Indication: OVARIAN CANCER
     Dosage: 36 MG/M2   WEEKLY   IV DRIP
     Route: 041
     Dates: start: 20060824, end: 20060921
  2. VERSED      2 MG     AVENTIS PHARMACUETICALS [Suspect]
     Indication: OVARIAN CANCER
     Dosage: 2 MG   WEEK 1 AND WEEK 6   IV DRIP
     Route: 041
     Dates: start: 20060823, end: 20060927
  3. LORTAB [Concomitant]
  4. MOTRIN [Concomitant]
  5. FLUOXETINE [Concomitant]
  6. M.V.I. [Concomitant]
  7. IRON [Concomitant]

REACTIONS (2)
  - HEADACHE [None]
  - INTRACRANIAL ANEURYSM [None]
